FAERS Safety Report 8444080-5 (Version None)
Quarter: 2012Q2

REPORT INFORMATION
  Report Type: 
  Country: None (occurrence: None)
  Receive Date: 20120618
  Receipt Date: 20120616
  Transmission Date: 20120825
  Serious: Yes (Death, Hospitalization, Other)
  Sender: FDA-Public Use
  Company Number: PHHY2012JP051390

PATIENT
  Age: 79 Year
  Sex: Male

DRUGS (2)
  1. DEFERASIROX [Suspect]
     Indication: IRON OVERLOAD
     Dosage: 1 G, DAILY
  2. DEFERASIROX [Suspect]
     Indication: MYELODYSPLASTIC SYNDROME

REACTIONS (7)
  - C-REACTIVE PROTEIN INCREASED [None]
  - OESOPHAGITIS [None]
  - DYSPHAGIA [None]
  - FATIGUE [None]
  - LEUKOCYTOSIS [None]
  - ANAEMIA [None]
  - PNEUMONIA [None]
